FAERS Safety Report 18950467 (Version 1)
Quarter: 2021Q1

REPORT INFORMATION
  Report Type: Spontaneous
  Country: US (occurrence: US)
  Receive Date: 20210228
  Receipt Date: 20210228
  Transmission Date: 20210420
  Serious: No
  Sender: FDA-Public Use
  Company Number: US-ROCHE-2741501

PATIENT
  Age: 75 Year
  Sex: Female
  Weight: 52.21 kg

DRUGS (6)
  1. MONTELUKAST [Concomitant]
     Active Substance: MONTELUKAST SODIUM
     Route: 048
  2. PEPCID AC [Concomitant]
     Active Substance: FAMOTIDINE
     Indication: GASTROOESOPHAGEAL REFLUX DISEASE
  3. ZYRTEC (UNITED STATES) [Concomitant]
  4. OMEPRAZOLE. [Concomitant]
     Active Substance: OMEPRAZOLE
     Indication: BARRETT^S OESOPHAGUS
     Route: 048
  5. FLUTICASONE. [Concomitant]
     Active Substance: FLUTICASONE
     Dosage: NASAL WASH TWICE A DAY;
     Route: 045
  6. XOLAIR [Suspect]
     Active Substance: OMALIZUMAB
     Indication: SKIN DISORDER
     Dosage: ONGOING : YES; 1 SHOT
     Route: 058
     Dates: start: 20201020

REACTIONS (3)
  - Dysgeusia [Not Recovered/Not Resolved]
  - Off label use [Unknown]
  - Intentional product use issue [Unknown]

NARRATIVE: CASE EVENT DATE: 20201020
